FAERS Safety Report 9616183 (Version 1)
Quarter: 2013Q4

REPORT INFORMATION
  Report Type: Spontaneous
  Country: US (occurrence: None)
  Receive Date: 20131010
  Receipt Date: 20131010
  Transmission Date: 20140711
  Serious: Yes (Hospitalization)
  Sender: FDA-Public Use
  Company Number: None

PATIENT
  Age: 66 Year
  Sex: Male
  Weight: 107.7 kg

DRUGS (1)
  1. CEFEPIME [Suspect]
     Indication: UPPER RESPIRATORY TRACT INFECTION
     Dosage: OTHER
     Route: 042
     Dates: start: 20130923, end: 20130923

REACTIONS (1)
  - Convulsion [None]
